FAERS Safety Report 8257711-X (Version None)
Quarter: 2012Q2

REPORT INFORMATION
  Report Type: 
  Country: None (occurrence: None)
  Receive Date: 20120404
  Receipt Date: 20120326
  Transmission Date: 20120825
  Serious: Yes (Other)
  Sender: FDA-Public Use
  Company Number: JP-BRISTOL-MYERS SQUIBB COMPANY-16420101

PATIENT
  Age: 56 Year
  Sex: Male

DRUGS (20)
  1. METFORMIN HCL [Suspect]
     Indication: HYPERGLYCAEMIA
     Route: 048
     Dates: start: 20110604, end: 20120207
  2. OLMESARTAN MEDOXOMIL [Concomitant]
     Indication: HYPERTENSION
     Route: 048
     Dates: end: 20120207
  3. ASPIRIN [Concomitant]
     Indication: MYOCARDIAL ISCHAEMIA
     Route: 048
  4. ZOLPIDEM [Concomitant]
     Indication: INSOMNIA
     Route: 048
  5. ETHYL ICOSAPENTATE [Concomitant]
     Indication: MYOCARDIAL ISCHAEMIA
     Route: 048
     Dates: end: 20120207
  6. THIAMINE HCL [Concomitant]
     Indication: GASTROENTERITIS
     Route: 042
     Dates: start: 20120204, end: 20120207
  7. CONIEL [Concomitant]
     Indication: MYOCARDIAL ISCHAEMIA
     Route: 048
     Dates: start: 20120207
  8. ALLOPURINOL [Concomitant]
     Indication: HYPERURICAEMIA
     Route: 048
     Dates: end: 20120207
  9. ALLEGRA [Concomitant]
     Indication: RHINITIS
     Route: 048
     Dates: start: 20111001, end: 20120207
  10. METFORMIN HCL [Concomitant]
     Indication: HYPERGLYCAEMIA
     Route: 048
     Dates: start: 20060719, end: 20110603
  11. DILTIAZEM HCL [Concomitant]
     Indication: MYOCARDIAL ISCHAEMIA
     Route: 048
  12. CONIEL [Concomitant]
     Indication: HYPERTENSION
     Route: 048
     Dates: start: 20120207
  13. ETHYL ICOSAPENTATE [Concomitant]
     Indication: PNEUMONIA
     Route: 048
     Dates: end: 20120207
  14. METHYCOOL [Concomitant]
     Indication: HYPOAESTHESIA
     Route: 048
     Dates: end: 20120207
  15. METFORMIN HCL [Suspect]
     Indication: DIABETES MELLITUS
     Route: 048
     Dates: start: 20110604, end: 20120207
  16. UBIRON [Concomitant]
     Indication: LIVER DISORDER
     Route: 048
     Dates: end: 20120207
  17. ASCORBIC ACID [Concomitant]
     Indication: GASTROENTERITIS
     Dosage: ORAL-04FEB12-04FEB12
     Route: 042
     Dates: end: 20120207
  18. CEFAZOLIN SODIUM [Concomitant]
     Route: 048
     Dates: start: 20120204, end: 20120207
  19. FOSMICIN [Concomitant]
     Indication: GASTROENTERITIS
     Route: 048
     Dates: start: 20120204, end: 20120207
  20. POTACOL-R [Concomitant]
     Indication: GASTROENTERITIS
     Dates: start: 20120204, end: 20120204

REACTIONS (2)
  - BLOOD PRESSURE DECREASED [None]
  - LIVER DISORDER [None]
